FAERS Safety Report 5806761-9 (Version None)
Quarter: 2008Q3

REPORT INFORMATION
  Report Type: 
  Country: None (occurrence: None)
  Receive Date: 20080709
  Receipt Date: 20080709
  Transmission Date: 20090109
  Serious: Yes (Other)
  Sender: FDA-Public Use
  Company Number: None

PATIENT
  Age: 80 Year
  Sex: Female

DRUGS (1)
  1. DIGITEK 0.125MG BERTEK [Suspect]
     Dosage: TAKE 1 TABLET DAILY

REACTIONS (5)
  - BLOOD PRESSURE DECREASED [None]
  - CHROMATOPSIA [None]
  - NAUSEA [None]
  - PHARMACEUTICAL PRODUCT COMPLAINT [None]
  - VOMITING [None]
